FAERS Safety Report 15256959 (Version 1)
Quarter: 2018Q3

REPORT INFORMATION
  Report Type: Spontaneous
  Country: US (occurrence: US)
  Receive Date: 20180808
  Receipt Date: 20180808
  Transmission Date: 20181010
  Serious: Yes (Other)
  Sender: FDA-Public Use
  Company Number: US-MYLANLABS-2018M1059432

PATIENT
  Age: 3 Week
  Sex: Female
  Weight: .55 kg

DRUGS (1)
  1. TOPIRAMATE. [Suspect]
     Active Substance: TOPIRAMATE
     Indication: CONVULSION NEONATAL
     Dosage: STARTED AT 27 WEEKS POSTCONCEPTUAL AGE
     Route: 048

REACTIONS (2)
  - Product use issue [Unknown]
  - Necrotising enterocolitis neonatal [Unknown]
